FAERS Safety Report 6538418-3 (Version None)
Quarter: 2010Q1

REPORT INFORMATION
  Report Type: 
  Country: None (occurrence: None)
  Receive Date: 20100114
  Receipt Date: 20090505
  Transmission Date: 20100710
  Serious: No
  Sender: FDA-Public Use
  Company Number: US-TYCO HEALTHCARE/MALLINCKRODT-T200900998

PATIENT
  Age: 57 Year
  Sex: Male
  Weight: 84.807 kg

DRUGS (9)
  1. OXYCODONE HCL AND ACETAMINOPHEN [Suspect]
     Indication: BACK PAIN
     Dosage: 1 TAB Q4HRS, PRN
     Route: 048
     Dates: start: 20060101, end: 20080901
  2. OXYCONTIN [Suspect]
  3. COZAAR [Concomitant]
     Indication: HYPERTENSION
     Dosage: 100 MG, QD
     Route: 048
  4. FLOVENT [Concomitant]
     Indication: ASTHMA
     Dosage: UNK, PRN
  5. FLOAIR [Concomitant]
     Indication: ASTHMA
     Dosage: UNK, PRN
  6. LIDODERM [Concomitant]
     Indication: PAIN
     Dosage: QHS
     Route: 062
  7. ASPIRIN [Concomitant]
     Indication: SUPPLEMENTATION THERAPY
     Dosage: 81 MG, QD
     Route: 048
  8. DIAZEPAM [Concomitant]
     Indication: ANXIETY
     Dosage: 3 OR 4 TABLETS, PRN
     Route: 048
  9. NASONEX [Concomitant]
     Indication: SINUS DISORDER
     Dosage: 3 TIMES PER WEEK, PRN
     Route: 045
     Dates: start: 20080601

REACTIONS (3)
  - ABDOMINAL DISCOMFORT [None]
  - CONSTIPATION [None]
  - DYSPEPSIA [None]
